FAERS Safety Report 12241322 (Version 2)
Quarter: 2016Q2

REPORT INFORMATION
  Report Type: Report from Study
  Country: CA (occurrence: CA)
  Receive Date: 20160406
  Receipt Date: 20160426
  Transmission Date: 20160815
  Serious: Yes (Death, Hospitalization, Other)
  Sender: FDA-Public Use
  Company Number: CA-AMGEN-CANSL2016042242

PATIENT
  Age: 74 Year
  Sex: Male
  Weight: 45.3 kg

DRUGS (2)
  1. ENBREL [Suspect]
     Active Substance: ETANERCEPT
     Indication: RHEUMATOID ARTHRITIS
     Dosage: 50 MG, QWK
     Route: 058
     Dates: start: 20120822, end: 20141104
  2. METHOTREXATE [Concomitant]
     Active Substance: METHOTREXATE
     Dosage: UNK

REACTIONS (20)
  - Radiation fibrosis - lung [Fatal]
  - Rheumatoid arthritis [Unknown]
  - Volvulus [Fatal]
  - Aspiration [Unknown]
  - Bladder neoplasm [Unknown]
  - Gastrooesophageal reflux disease [Unknown]
  - Hiatus hernia [Unknown]
  - Chest pain [Unknown]
  - Death [Fatal]
  - Cachexia [Unknown]
  - Anaemia [Unknown]
  - Large intestine perforation [Fatal]
  - Pleural effusion [Unknown]
  - Radiation pneumonitis [Unknown]
  - Lung squamous cell carcinoma stage IV [Fatal]
  - Lung infection [Unknown]
  - Dyspnoea [Unknown]
  - Fatigue [Unknown]
  - Dyspepsia [Unknown]
  - Emphysema [Unknown]

NARRATIVE: CASE EVENT DATE: 2013
